FAERS Safety Report 9432902 (Version 1)
Quarter: 2013Q3

REPORT INFORMATION
  Report Type: Spontaneous
  Country: JP (occurrence: None)
  Receive Date: 20130729
  Receipt Date: 20130729
  Transmission Date: 20140515
  Serious: Yes (Other)
  Sender: FDA-Public Use
  Company Number: SYM-2013-06825

PATIENT
  Age: 60 Year
  Sex: Male

DRUGS (4)
  1. FLUOROURACIL [Suspect]
     Indication: HYPOPHARYNGEAL CANCER
  2. DOCETAXEL [Suspect]
     Indication: HYPOPHARYNGEAL CANCER
  3. CISPLATIN [Suspect]
     Indication: HYPOPHARYNGEAL CANCER
  4. THERAPEUTIC RADIOPHARMACEUTICALS (THERAPEUTIC RADIOPHARMACEUTICALS) [Concomitant]

REACTIONS (3)
  - Abscess [None]
  - Renal impairment [None]
  - Febrile neutropenia [None]
